FAERS Safety Report 12644646 (Version 1)
Quarter: 2016Q3

REPORT INFORMATION
  Report Type: Spontaneous
  Country: US (occurrence: US)
  Receive Date: 20160811
  Receipt Date: 20160811
  Transmission Date: 20161109
  Serious: Yes (Other)
  Sender: FDA-Public Use
  Company Number: US-ENDO PHARMACEUTICALS INC.-2015-002069

PATIENT
  Age: 54 Year
  Sex: Male
  Weight: 90.8 kg

DRUGS (1)
  1. PREDNISONE TABLETS 2.5MG [Suspect]
     Active Substance: PREDNISONE
     Indication: COLITIS ULCERATIVE
     Route: 048
     Dates: start: 1980

REACTIONS (2)
  - Osteoporosis [Unknown]
  - Cataract [Unknown]

NARRATIVE: CASE EVENT DATE: 2013
